FAERS Safety Report 14849062 (Version 3)
Quarter: 2020Q2

REPORT INFORMATION
  Report Type: Spontaneous
  Country: IT (occurrence: IT)
  Receive Date: 20180504
  Receipt Date: 20200505
  Transmission Date: 20200713
  Serious: Yes (Hospitalization, Other)
  Sender: FDA-Public Use
  Company Number: IT-DSJP-DSE-2018-117647

PATIENT

DRUGS (11)
  1. ELIQUIS [Suspect]
     Active Substance: APIXABAN
     Indication: DRUG ABUSE
     Dosage: 60 DF,TOTAL
     Route: 048
     Dates: start: 20180118, end: 20180118
  2. ATORVASTATIN [Suspect]
     Active Substance: ATORVASTATIN
     Indication: DRUG ABUSE
     Dosage: 50 DF,TOTAL
     Route: 048
     Dates: start: 20180118, end: 20180118
  3. AMLODIPINE [Suspect]
     Active Substance: AMLODIPINE BESYLATE
     Indication: DRUG ABUSE
     Dosage: 14 DF,TOTAL
     Route: 048
     Dates: start: 20180118, end: 20180118
  4. AMIODARONE [Suspect]
     Active Substance: AMIODARONE
     Indication: DRUG ABUSE
     Dosage: 20 DF,TOTAL
     Route: 048
     Dates: start: 20180118, end: 20180118
  5. OLMESARTAN MEDOXOMIL; HYDROCHLOROTHIAZIDE [Suspect]
     Active Substance: HYDROCHLOROTHIAZIDE\OLMESARTAN MEDOXOMIL
     Indication: DRUG ABUSE
     Dosage: 64 DF, TOTAL
     Route: 048
     Dates: start: 20180118, end: 20180118
  6. IDROCLOROTIAZIDE W/RAMIPRIL [Suspect]
     Active Substance: HYDROCHLOROTHIAZIDE\RAMIPRIL
     Indication: DRUG ABUSE
     Dosage: 64 DF, TOTAL
     Route: 048
     Dates: start: 20180118, end: 20180118
  7. TAMSULOSIN HYDROCHLORIDE. [Concomitant]
     Active Substance: TAMSULOSIN HYDROCHLORIDE
     Indication: BENIGN PROSTATIC HYPERPLASIA
     Dosage: UNK
     Route: 048
  8. BISOPROLOL HEMIFUMARATE [Suspect]
     Active Substance: BISOPROLOL FUMARATE
     Indication: DRUG ABUSE
     Dosage: 28 DF,TOTAL
     Route: 048
     Dates: start: 20180118, end: 20180118
  9. TRIAZOLAM. [Suspect]
     Active Substance: TRIAZOLAM
     Indication: DRUG ABUSE
     Dosage: 20 DF,TOTAL
     Route: 048
     Dates: start: 20180118, end: 20180118
  10. PALEXIA [Suspect]
     Active Substance: TAPENTADOL HYDROCHLORIDE
     Indication: DRUG ABUSE
     Dosage: 80 DF,TOTAL
     Route: 048
     Dates: start: 20180118, end: 20180118
  11. TAMSULOSIN HYDROCHLORIDE. [Concomitant]
     Active Substance: TAMSULOSIN HYDROCHLORIDE
     Dosage: UNK UNK,UNK
     Route: 048

REACTIONS (4)
  - Drug abuse [Recovering/Resolving]
  - Urinary incontinence [Recovering/Resolving]
  - Confusional state [Recovering/Resolving]
  - Intentional overdose [Unknown]

NARRATIVE: CASE EVENT DATE: 20180118
